FAERS Safety Report 8874373 (Version 4)
Quarter: 2013Q1

REPORT INFORMATION
  Report Type: Spontaneous
  Country: US (occurrence: US)
  Receive Date: 20121031
  Receipt Date: 20130226
  Transmission Date: 20140127
  Serious: No
  Sender: FDA-Public Use
  Company Number: US-BIOGENIDEC-2012BI047430

PATIENT
  Age: 29 Year
  Sex: Female

DRUGS (3)
  1. TYSABRI [Suspect]
     Indication: MULTIPLE SCLEROSIS
     Route: 042
     Dates: start: 20120116, end: 20120917
  2. AVONEX [Concomitant]
     Indication: BACK PAIN
     Route: 030
     Dates: start: 20070522
  3. AVONEX [Concomitant]
     Indication: ERYTHEMA
     Route: 030
     Dates: start: 20070522

REACTIONS (7)
  - Adverse reaction [Unknown]
  - Back pain [Recovered/Resolved]
  - Erythema [Recovered/Resolved]
  - Musculoskeletal disorder [Not Recovered/Not Resolved]
  - Diarrhoea [Unknown]
  - Hypersensitivity [Recovered/Resolved]
  - Dyspnoea [Recovered/Resolved]
